FAERS Safety Report 16043810 (Version 2)
Quarter: 2019Q2

REPORT INFORMATION
  Report Type: Spontaneous
  Country: SI (occurrence: SI)
  Receive Date: 20190306
  Receipt Date: 20190412
  Transmission Date: 20190711
  Serious: Yes (Hospitalization, Other)
  Sender: FDA-Public Use
  Company Number: PHHY2019SI009822

PATIENT
  Age: 58 Year
  Sex: Male

DRUGS (4)
  1. COSENTYX [Suspect]
     Active Substance: SECUKINUMAB
     Indication: PSORIATIC ARTHROPATHY
     Dosage: 300 MG (2 AMPOULE), UNK
     Route: 065
     Dates: start: 20190107
  2. ACIPAN [Concomitant]
     Active Substance: PANTOPRAZOLE SODIUM
     Indication: PRODUCT USED FOR UNKNOWN INDICATION
     Dosage: 20 MG, UNK (IN THE MORINING)
     Route: 065
  3. COSENTYX [Suspect]
     Active Substance: SECUKINUMAB
     Dosage: 300 MG, UNK
     Route: 065
     Dates: start: 20190125
  4. NAKLOFEN [Concomitant]
     Active Substance: DICLOFENAC SODIUM
     Indication: PRODUCT USED FOR UNKNOWN INDICATION
     Dosage: UNK UNK, PRN (2 TO 1 CAPSULES)
     Route: 065

REACTIONS (19)
  - Arthralgia [Unknown]
  - Mental disorder [Unknown]
  - Encephalomalacia [Unknown]
  - Spinal pain [Unknown]
  - Feeling abnormal [Recovered/Resolved]
  - Disturbance in attention [Unknown]
  - Burning sensation [Recovering/Resolving]
  - Dry skin [Unknown]
  - Hallucination, auditory [Recovered/Resolved]
  - Heart rate increased [Unknown]
  - Sleep disorder [Unknown]
  - Neck pain [Unknown]
  - Leukopenia [Unknown]
  - Erythema [Unknown]
  - Eyelid irritation [Recovering/Resolving]
  - Skin exfoliation [Recovering/Resolving]
  - Paraesthesia [Recovered/Resolved]
  - Psychotic disorder [Unknown]
  - Somnolence [Unknown]

NARRATIVE: CASE EVENT DATE: 20190125
